FAERS Safety Report 13300761 (Version 1)
Quarter: 2017Q1

REPORT INFORMATION
  Report Type: Report from Study
  Country: ES (occurrence: ES)
  Receive Date: 20170307
  Receipt Date: 20170307
  Transmission Date: 20170428
  Serious: Yes (Other)
  Sender: FDA-Public Use
  Company Number: ES-BION-006052

PATIENT
  Age: 55 Year
  Sex: Female

DRUGS (1)
  1. NAPROXEN SODIUM UNKNOWN PRODUCT [Suspect]
     Active Substance: NAPROXEN SODIUM
     Indication: PRODUCT USED FOR UNKNOWN INDICATION

REACTIONS (4)
  - Type I hypersensitivity [Unknown]
  - Urticaria [Unknown]
  - Anaphylactic reaction [Unknown]
  - Pruritus generalised [Unknown]
